FAERS Safety Report 23939546 (Version 2)
Quarter: 2024Q3

REPORT INFORMATION
  Report Type: Report from Study
  Country: JP (occurrence: JP)
  Receive Date: 20240605
  Receipt Date: 20240710
  Transmission Date: 20241017
  Serious: Yes (Hospitalization)
  Sender: GLAXOSMITHKLINE
  Company Number: JP-GSK-JP2020JPN208488

PATIENT

DRUGS (21)
  1. BELIMUMAB [Suspect]
     Active Substance: BELIMUMAB
     Indication: Systemic lupus erythematosus
     Dosage: 9 MG/KG
     Route: 041
     Dates: start: 20191220, end: 20191220
  2. BELIMUMAB [Suspect]
     Active Substance: BELIMUMAB
     Dosage: 9 MG/KG
     Route: 041
     Dates: start: 20200102, end: 20200102
  3. BELIMUMAB [Suspect]
     Active Substance: BELIMUMAB
     Dosage: 9 MG/KG
     Route: 041
     Dates: start: 20200117, end: 20200117
  4. BELIMUMAB [Suspect]
     Active Substance: BELIMUMAB
     Dosage: 9 MG/KG
     Route: 041
     Dates: start: 20200217, end: 20200217
  5. BELIMUMAB [Suspect]
     Active Substance: BELIMUMAB
     Dosage: 9 MG/KG
     Route: 041
     Dates: start: 20200316, end: 20200316
  6. BELIMUMAB [Suspect]
     Active Substance: BELIMUMAB
     Dosage: 9 MG/KG
     Route: 041
     Dates: start: 20200416, end: 20200416
  7. BELIMUMAB [Suspect]
     Active Substance: BELIMUMAB
     Dosage: 9 MG/KG
     Route: 041
     Dates: start: 20200519, end: 20200519
  8. BELIMUMAB [Suspect]
     Active Substance: BELIMUMAB
     Dosage: 8.8 MG/KG
     Route: 041
     Dates: start: 20200616, end: 20200616
  9. BELIMUMAB [Suspect]
     Active Substance: BELIMUMAB
     Dosage: 8.8 MG/KG
     Route: 041
     Dates: start: 20200721, end: 20200721
  10. BELIMUMAB [Suspect]
     Active Substance: BELIMUMAB
     Dosage: 9.2 MG/KG
     Route: 041
     Dates: start: 20200818, end: 20200818
  11. BELIMUMAB [Suspect]
     Active Substance: BELIMUMAB
     Dosage: 9.1 MG/KG
     Route: 041
     Dates: start: 20200924, end: 20200924
  12. BELIMUMAB [Suspect]
     Active Substance: BELIMUMAB
     Dosage: 9.3 MG/KG
     Route: 041
     Dates: start: 20201020, end: 20201020
  13. BELIMUMAB [Suspect]
     Active Substance: BELIMUMAB
     Dosage: 9.2 MG/KG
     Route: 041
     Dates: start: 20201117, end: 20201117
  14. BELIMUMAB [Suspect]
     Active Substance: BELIMUMAB
     Dosage: 9.2 MG/KG
     Route: 041
     Dates: start: 20201222, end: 20201222
  15. CELLCEPT [Concomitant]
     Active Substance: MYCOPHENOLATE MOFETIL
     Indication: Systemic lupus erythematosus
     Dosage: UNK
  16. PREDONINE [Concomitant]
     Active Substance: PREDNISOLONE
     Indication: Systemic lupus erythematosus
     Dosage: 7.5 MG, 1D
     Route: 048
     Dates: end: 20200116
  17. PREDONINE [Concomitant]
     Active Substance: PREDNISOLONE
     Dosage: 7 MG, 1D
     Route: 048
     Dates: start: 20200117, end: 20200216
  18. PREDONINE [Concomitant]
     Active Substance: PREDNISOLONE
     Dosage: 6 MG, 1D
     Route: 048
     Dates: start: 20200217, end: 20200315
  19. PREDONINE [Concomitant]
     Active Substance: PREDNISOLONE
     Dosage: 5 MG, 1D
     Route: 048
     Dates: start: 20200316
  20. FAMOTIDINE [Concomitant]
     Active Substance: FAMOTIDINE
     Indication: Prophylaxis
     Dosage: UNK
  21. CALONAL [Concomitant]
     Active Substance: ACETAMINOPHEN
     Dosage: UNK

REACTIONS (5)
  - COVID-19 [Recovered/Resolved]
  - Prescribed underdose [Unknown]
  - Product use issue [Unknown]
  - Inappropriate schedule of product administration [Unknown]
  - Off label use [Unknown]

NARRATIVE: CASE EVENT DATE: 20191220
